FAERS Safety Report 8879358 (Version 1)
Quarter: 2012Q4

REPORT INFORMATION
  Report Type: 
  Country: FR (occurrence: FR)
  Receive Date: 20121031
  Receipt Date: 20121031
  Transmission Date: 20130627
  Serious: Yes (Hospitalization)
  Sender: FDA-Public Use
  Company Number: FR-B.I. PHARMACEUTICALS,INC./RIDGEFIELD-2012-FF-01529FF

PATIENT
  Sex: Female

DRUGS (5)
  1. MOBIC [Suspect]
     Route: 048
     Dates: start: 2011, end: 2011
  2. ENBREL [Suspect]
     Route: 058
     Dates: start: 201204, end: 201206
  3. NOVATREX [Suspect]
     Route: 048
     Dates: start: 201204, end: 201206
  4. SALAZOPYRINE [Suspect]
     Route: 048
     Dates: start: 2011, end: 2011
  5. BUTAZOLIDIN [Suspect]
     Route: 048
     Dates: start: 2011, end: 2011

REACTIONS (1)
  - Sarcoidosis [Not Recovered/Not Resolved]
